FAERS Safety Report 8509170 (Version 2)
Quarter: 2012Q4

REPORT INFORMATION
  Report Type: 
  Country: US (occurrence: US)
  Receive Date: 20120412
  Receipt Date: 20121217
  Transmission Date: 20130627
  Serious: Yes (Hospitalization, Other)
  Sender: FDA-Public Use
  Company Number: US-ASTRAZENECA-2011SE48482

PATIENT
  Age: 57 Year
  Sex: Female

DRUGS (2)
  1. NEXIUM [Suspect]
     Route: 048
  2. METFORMIN [Suspect]
     Route: 048

REACTIONS (11)
  - Intervertebral disc protrusion [Unknown]
  - Malaise [Unknown]
  - Nausea [Unknown]
  - Vomiting [Unknown]
  - Diabetes mellitus [Unknown]
  - Fibromyalgia [Unknown]
  - Blood potassium decreased [Unknown]
  - Neuropathy peripheral [Unknown]
  - Pain [Unknown]
  - Sciatica [Unknown]
  - Arthropathy [Unknown]
